FAERS Safety Report 21347235 (Version 2)
Quarter: 2022Q3

REPORT INFORMATION
  Report Type: Report from Study
  Country: CA (occurrence: CA)
  Receive Date: 20220919
  Receipt Date: 20220919
  Transmission Date: 20221027
  Serious: Yes (Other)
  Sender: FDA-Public Use
  Company Number: CA-JNJFOC-20220931368

PATIENT
  Age: 4 Year
  Sex: Male
  Weight: 16 kg

DRUGS (1)
  1. REMICADE [Suspect]
     Active Substance: INFLIXIMAB
     Indication: Colitis ulcerative
     Dosage: ON 13-SEP-2022, THE PATIENT RECEIVED 6TH DOSE OF REMICADE INFUSION AT THE DOSE OF 300 MG AND PARTIAL
     Route: 041
     Dates: start: 20220525

REACTIONS (2)
  - Haematochezia [Not Recovered/Not Resolved]
  - Gastrointestinal inflammation [Unknown]

NARRATIVE: CASE EVENT DATE: 20220830
